FAERS Safety Report 24267922 (Version 1)
Quarter: 2024Q3

REPORT INFORMATION
  Report Type: Spontaneous
  Country: CN (occurrence: CN)
  Receive Date: 20240830
  Receipt Date: 20240830
  Transmission Date: 20241016
  Serious: Yes (Hospitalization, Other)
  Sender: Haleon PLC
  Company Number: CN-HALEON-2194106

PATIENT
  Age: 71 Year
  Sex: Male

DRUGS (3)
  1. DICLOFENAC SODIUM [Suspect]
     Active Substance: DICLOFENAC\DICLOFENAC SODIUM
     Indication: Gout
     Route: 048
     Dates: start: 20240402, end: 20240701
  2. CLOPIDOGREL BISULFATE [Suspect]
     Active Substance: CLOPIDOGREL BISULFATE
     Indication: Cerebral infarction
     Route: 048
     Dates: start: 20240701, end: 20240706
  3. ASPIRIN [Suspect]
     Active Substance: ASPIRIN
     Indication: Cerebral infarction
     Route: 048
     Dates: start: 20240701, end: 20240706

REACTIONS (10)
  - Polyglandular disorder [Recovering/Resolving]
  - Abdominal pain upper [Recovering/Resolving]
  - Intestinal metaplasia [Recovering/Resolving]
  - Melaena [Recovering/Resolving]
  - Chronic gastritis [Recovering/Resolving]
  - Gastric ulcer [Recovering/Resolving]
  - Inflammation [Recovering/Resolving]
  - Lower gastrointestinal haemorrhage [Recovering/Resolving]
  - Gastrooesophageal reflux disease [Recovering/Resolving]
  - Product use in unapproved indication [Unknown]

NARRATIVE: CASE EVENT DATE: 20240402
